FAERS Safety Report 15732198 (Version 1)
Quarter: 2018Q4

REPORT INFORMATION
  Report Type: Report from Study
  Country: DK (occurrence: DK)
  Receive Date: 20181217
  Receipt Date: 20181217
  Transmission Date: 20190205
  Serious: Yes (Death, Life-Threatening, Hospitalization)
  Sender: FDA-Public Use
  Company Number: DK-MYLANLABS-2018M1093884

PATIENT
  Age: 49 Year
  Sex: Male

DRUGS (6)
  1. VERAPAMIL [Suspect]
     Active Substance: VERAPAMIL HYDROCHLORIDE
     Indication: PRODUCT USED FOR UNKNOWN INDICATION
     Dosage: FORMULATION: EXTENDED RELEASE
     Route: 065
  2. CODEINE [Concomitant]
     Active Substance: CODEINE
     Route: 065
  3. QUETIAPINE. [Concomitant]
     Active Substance: QUETIAPINE
     Route: 065
  4. ACETAMINOPHEN. [Concomitant]
     Active Substance: ACETAMINOPHEN
     Route: 065
  5. TOPIRAMATE. [Concomitant]
     Active Substance: TOPIRAMATE
     Route: 065
  6. TRAMADOL. [Concomitant]
     Active Substance: TRAMADOL
     Route: 065

REACTIONS (12)
  - Cardiac arrest [Fatal]
  - Cardiotoxicity [Fatal]
  - Electrocardiogram ST segment depression [Fatal]
  - Pallor [Unknown]
  - Coma scale abnormal [Unknown]
  - Completed suicide [Fatal]
  - Intentional overdose [Fatal]
  - Seizure [Unknown]
  - Bradycardia [Fatal]
  - Toxicity to various agents [Fatal]
  - Nasopharyngitis [Unknown]
  - Pulseless electrical activity [Fatal]
